FAERS Safety Report 14363876 (Version 2)
Quarter: 2018Q1

REPORT INFORMATION
  Report Type: Spontaneous
  Country: IN (occurrence: IN)
  Receive Date: 20180108
  Receipt Date: 20180118
  Transmission Date: 20180509
  Serious: Yes (Death, Life-Threatening, Hospitalization)
  Sender: FDA-Public Use
  Company Number: IN-PFIZER INC-2018004297

PATIENT
  Age: 17 Year
  Sex: Male

DRUGS (9)
  1. ONDANSETRON [Suspect]
     Active Substance: ONDANSETRON
     Indication: OROPHARYNGEAL PAIN
     Dosage: 8 MG, UNK (2 TABLETS OF ONDANSETRON 4 MG)
  2. ONDANSETRON [Suspect]
     Active Substance: ONDANSETRON
     Indication: VOMITING
  3. ERYTHROMYCIN ESTOLATE. [Suspect]
     Active Substance: ERYTHROMYCIN ESTOLATE
     Indication: PYREXIA
  4. ERYTHROMYCIN ESTOLATE. [Suspect]
     Active Substance: ERYTHROMYCIN ESTOLATE
     Indication: OROPHARYNGEAL PAIN
     Dosage: 1 DF, UNK (1 TABLET OF ERYTHROMYCIN 500 MG)
  5. ERYTHROMYCIN ESTOLATE. [Suspect]
     Active Substance: ERYTHROMYCIN ESTOLATE
     Indication: VOMITING
  6. QUININE [Suspect]
     Active Substance: QUININE
     Indication: OROPHARYNGEAL PAIN
     Dosage: 300 MG, UNK
  7. QUININE [Suspect]
     Active Substance: QUININE
     Indication: PYREXIA
  8. QUININE [Suspect]
     Active Substance: QUININE
     Indication: VOMITING
  9. ONDANSETRON [Suspect]
     Active Substance: ONDANSETRON
     Indication: PYREXIA

REACTIONS (1)
  - Toxic epidermal necrolysis [Fatal]
